FAERS Safety Report 8494506-6 (Version None)
Quarter: 2012Q3

REPORT INFORMATION
  Report Type: 
  Country: None (occurrence: None)
  Receive Date: 20120709
  Receipt Date: 20120611
  Transmission Date: 20120928
  Serious: No
  Sender: FDA-Public Use
  Company Number: US-COVIDIEN/TYCO HEALTHCARE/MALLINCKRODT-T201202535

PATIENT
  Age: 65 Year
  Sex: Male
  Weight: 78.005 kg

DRUGS (2)
  1. OXYCODONE/ACETAMINOPHEN [Suspect]
     Indication: NECK PAIN
     Dosage: UNK
     Dates: start: 20120501
  2. OXYCODONE/ACETAMINOPHEN [Concomitant]
     Dosage: 1/2 TABLET

REACTIONS (4)
  - FEELING JITTERY [None]
  - INSOMNIA [None]
  - NAUSEA [None]
  - BLOOD PRESSURE INCREASED [None]
